FAERS Safety Report 16744112 (Version 1)
Quarter: 2019Q3

REPORT INFORMATION
  Report Type: Other
  Country: GB (occurrence: GB)
  Receive Date: 20190827
  Receipt Date: 20190827
  Transmission Date: 20191005
  Serious: Yes (Hospitalization)
  Sender: FDA-Public Use
  Company Number: GB-EMCURE PHARMACEUTICALS LTD-2019-EPL-0582

PATIENT
  Age: 87 Year
  Sex: Female

DRUGS (12)
  1. CO-AMOXICLAV                       /00756801/ [Concomitant]
     Active Substance: AMOXICILLIN\CLAVULANIC ACID
  2. TRIMETHOPRIM. [Concomitant]
     Active Substance: TRIMETHOPRIM
  3. ACETYLSALICYLIC ACID [Concomitant]
     Active Substance: ASPIRIN
  4. LACTULOSE. [Concomitant]
     Active Substance: LACTULOSE
  5. COCODAMOL [Concomitant]
     Active Substance: ACETAMINOPHEN\CODEINE PHOSPHATE
  6. OMEPRAZOLE. [Concomitant]
     Active Substance: OMEPRAZOLE
     Dosage: WITHHELD REPLACE WITH RANITIDINE
  7. SERTRALINE HYDROCHLORIDE. [Suspect]
     Active Substance: SERTRALINE HYDROCHLORIDE
     Indication: DEPRESSION
     Dosage: 50 MILLIGRAM IN THE MORNING
     Route: 048
     Dates: start: 20190521, end: 20190604
  8. RANITIDINE. [Concomitant]
     Active Substance: RANITIDINE
  9. LAXIDO [Concomitant]
     Active Substance: POLYETHYLENE GLYCOL 3350\POTASSIUM CHLORIDE\SODIUM BICARBONATE\SODIUM CHLORIDE
  10. SODIUM FEREDETATE [Concomitant]
     Active Substance: SODIUM FEREDETATE
  11. INDAPAMIDE. [Concomitant]
     Active Substance: INDAPAMIDE
  12. ENOXAPARIN [Concomitant]
     Active Substance: ENOXAPARIN

REACTIONS (5)
  - Urinary tract infection [Unknown]
  - Microcytic anaemia [Unknown]
  - Hyponatraemia [Recovering/Resolving]
  - Confusional state [Recovering/Resolving]
  - General physical health deterioration [Unknown]

NARRATIVE: CASE EVENT DATE: 20190603
